FAERS Safety Report 13336672 (Version 1)
Quarter: 2017Q1

REPORT INFORMATION
  Report Type: Spontaneous
  Country: JP (occurrence: JP)
  Receive Date: 20170315
  Receipt Date: 20170315
  Transmission Date: 20170428
  Serious: Yes (Other)
  Sender: FDA-Public Use
  Company Number: JP-LUPIN PHARMACEUTICALS INC.-2017-01056

PATIENT
  Age: 74 Year
  Sex: Male

DRUGS (4)
  1. BIMATOPROST. [Suspect]
     Active Substance: BIMATOPROST
     Indication: OPEN ANGLE GLAUCOMA
     Dosage: 0.03 %, UNK
  2. DORZOLAMIDE [Concomitant]
     Active Substance: DORZOLAMIDE
     Indication: OPEN ANGLE GLAUCOMA
     Dosage: 1 %, UNK
  3. BIMATOPROST. [Suspect]
     Active Substance: BIMATOPROST
     Dosage: UNK
  4. BRIMONIDINE [Concomitant]
     Active Substance: BRIMONIDINE TARTRATE
     Indication: OPEN ANGLE GLAUCOMA
     Dosage: 0.1 %, UNK

REACTIONS (1)
  - Choroidal detachment [Recovered/Resolved]
